FAERS Safety Report 20488850 (Version 2)
Quarter: 2022Q1

REPORT INFORMATION
  Report Type: Spontaneous
  Country: US (occurrence: US)
  Receive Date: 20220218
  Receipt Date: 20220314
  Transmission Date: 20220424
  Serious: No
  Sender: FDA-Public Use
  Company Number: US-AIMMUNE THERAPEUTICS, INC.-2022AIMT00094

PATIENT

DRUGS (4)
  1. PALFORZIA [Suspect]
     Active Substance: PEANUT
     Indication: Food allergy
     Dosage: 12 MG, 1X/DAY
     Route: 048
     Dates: start: 20220119, end: 20220126
  2. PALFORZIA [Suspect]
     Active Substance: PEANUT
     Dosage: 12 MG, ONCE, LAST DOSE PRIOR EVENT
     Route: 048
     Dates: start: 20220119, end: 20220119
  3. PALFORZIA [Suspect]
     Active Substance: PEANUT
     Dosage: 6 MG, 1X/DAY, DOSE DECREASED
     Route: 048
     Dates: start: 20220127, end: 202202
  4. PALFORZIA [Suspect]
     Active Substance: PEANUT
     Dosage: 12 MG, 1X/DAY, DOSE INCREASED BACK
     Route: 048
     Dates: start: 202202

REACTIONS (1)
  - Salivary hypersecretion [Recovered/Resolved]

NARRATIVE: CASE EVENT DATE: 20220120
